FAERS Safety Report 9433977 (Version 2)
Quarter: 2013Q3

REPORT INFORMATION
  Report Type: Spontaneous
  Country: US (occurrence: US)
  Receive Date: 20130801
  Receipt Date: 20130828
  Transmission Date: 20140515
  Serious: Yes (Other)
  Sender: FDA-Public Use
  Company Number: US-ROCHE-1251813

PATIENT
  Age: 43 Year
  Sex: Female

DRUGS (1)
  1. RITUXAN [Suspect]
     Indication: RHEUMATOID ARTHRITIS
     Route: 042

REACTIONS (6)
  - Anaphylactic reaction [Recovered/Resolved]
  - Product quality issue [Unknown]
  - Oropharyngeal pain [Unknown]
  - Throat tightness [Unknown]
  - Dyspnoea [Unknown]
  - Nausea [Unknown]
